FAERS Safety Report 6381759-3 (Version None)
Quarter: 2009Q3

REPORT INFORMATION
  Report Type: 
  Country: None (occurrence: None)
  Receive Date: 20090930
  Receipt Date: 20090925
  Transmission Date: 20100115
  Serious: Yes (Death, Hospitalization)
  Sender: FDA-Public Use
  Company Number: PHHY2009AU41508

PATIENT
  Sex: Male

DRUGS (1)
  1. CLOZARIL [Suspect]
     Dosage: UNK
     Dates: start: 20060814

REACTIONS (4)
  - ASTHMA [None]
  - DYSPNOEA [None]
  - MECHANICAL VENTILATION [None]
  - RESPIRATORY ARREST [None]
